FAERS Safety Report 23115343 (Version 1)
Quarter: 2023Q4

REPORT INFORMATION
  Report Type: Spontaneous
  Country: US (occurrence: None)
  Receive Date: 20231026
  Receipt Date: 20231026
  Transmission Date: 20240110
  Serious: Yes (Life-Threatening, Hospitalization)
  Sender: FDA-Public Use
  Company Number: None

PATIENT
  Age: 74 Year
  Sex: Female

DRUGS (3)
  1. SULFAMETHOXAZOLE\TRIMETHOPRIM [Suspect]
     Active Substance: SULFAMETHOXAZOLE\TRIMETHOPRIM
  2. FUROSEMIDE [Suspect]
     Active Substance: FUROSEMIDE
  3. VALSARTAN [Suspect]
     Active Substance: VALSARTAN

REACTIONS (3)
  - Acute kidney injury [None]
  - Hyperkalaemia [None]
  - Therapy interrupted [None]

NARRATIVE: CASE EVENT DATE: 20230721
